FAERS Safety Report 8809335 (Version 1)
Quarter: 2012Q4

REPORT INFORMATION
  Report Type: 
  Country: US (occurrence: US)
  Receive Date: 20120926
  Receipt Date: 20120926
  Transmission Date: 20130627
  Serious: No
  Sender: FDA-Public Use
  Company Number: US-TEVA-360773USA

PATIENT
  Age: 64 Year
  Sex: Female
  Weight: 48.58 kg

DRUGS (2)
  1. PROAIR HFA [Suspect]
     Indication: CHEST DISCOMFORT
     Route: 055
     Dates: start: 201101
  2. CALCIUM CARBONATE [Concomitant]
     Indication: ABDOMINAL DISCOMFORT
     Route: 048

REACTIONS (1)
  - Musculoskeletal stiffness [Recovered/Resolved]
